FAERS Safety Report 8973558 (Version 1)
Quarter: 2012Q4

REPORT INFORMATION
  Report Type: 
  Country: VE (occurrence: VE)
  Receive Date: 20121218
  Receipt Date: 20121218
  Transmission Date: 20130627
  Serious: Yes (Other)
  Sender: FDA-Public Use
  Company Number: PHHY2011VE117555

PATIENT
  Age: 56 Year
  Sex: Male

DRUGS (3)
  1. DIOVAN [Suspect]
     Indication: HYPERTENSION
     Dosage: UNK
     Route: 048
     Dates: start: 1997, end: 201207
  2. ENALAPRIL [Suspect]
     Indication: HYPERTENSION
     Dosage: 20 mg, UNK
  3. CAPTOPRIL [Suspect]
     Indication: HYPERTENSION
     Dosage: UNK

REACTIONS (7)
  - Asthma [Recovered/Resolved]
  - Sinusitis [Recovered/Resolved]
  - Blood pressure inadequately controlled [Recovered/Resolved]
  - Obesity [Not Recovered/Not Resolved]
  - Cough [Unknown]
  - Increased upper airway secretion [Unknown]
  - Drug ineffective [Recovered/Resolved]
